FAERS Safety Report 24344642 (Version 1)
Quarter: 2024Q3

REPORT INFORMATION
  Report Type: Spontaneous
  Country: US (occurrence: None)
  Receive Date: 20240919
  Receipt Date: 20240919
  Transmission Date: 20241016
  Serious: Yes (Life-Threatening, Hospitalization, Other)
  Sender: Public
  Company Number: None

PATIENT
  Age: 61 Year
  Sex: Male
  Weight: 83.2 kg

DRUGS (8)
  1. CLOZAPINE [Suspect]
     Active Substance: CLOZAPINE
     Indication: Schizoaffective disorder bipolar type
     Dosage: 100 MG DAILY ORAL ?
     Route: 048
  2. CLOZAPINE [Suspect]
     Active Substance: CLOZAPINE
     Indication: Schizoaffective disorder bipolar type
     Dosage: 500 MG AT BEDTIME  ORAL ?
     Route: 048
  3. DOCUSATE [Concomitant]
     Active Substance: DOCUSATE
  4. INSULIN GLARGINE [Concomitant]
     Active Substance: INSULIN GLARGINE
  5. INSULIN LISPRO [Concomitant]
     Active Substance: INSULIN LISPRO
  6. LORAZEPAM [Concomitant]
     Active Substance: LORAZEPAM
  7. METFORMIN [Concomitant]
     Active Substance: METFORMIN HYDROCHLORIDE
  8. TAMSULOSIN [Concomitant]
     Active Substance: TAMSULOSIN

REACTIONS (8)
  - Somnolence [None]
  - Delirium [None]
  - Blood creatine phosphokinase increased [None]
  - Hyperhidrosis [None]
  - Rash [None]
  - Pyrexia [None]
  - Malignant catatonia [None]
  - Cogwheel rigidity [None]

NARRATIVE: CASE EVENT DATE: 20240625
